FAERS Safety Report 8817225 (Version 1)
Quarter: 2012Q4

REPORT INFORMATION
  Report Type: 
  Country: US (occurrence: US)
  Receive Date: 20121001
  Receipt Date: 20121001
  Transmission Date: 20130627
  Serious: No
  Sender: FDA-Public Use
  Company Number: US-009507513-1208USA009175

PATIENT
  Sex: Female

DRUGS (1)
  1. PEGINTRON [Suspect]
     Dosage: redipen, 80 micrograms/0.5 ml, qw
     Route: 058

REACTIONS (2)
  - Cystitis [Unknown]
  - Adverse drug reaction [Unknown]
